FAERS Safety Report 8922469 (Version 2)
Quarter: 2012Q4

REPORT INFORMATION
  Report Type: 
  Country: US (occurrence: US)
  Receive Date: 20121123
  Receipt Date: 20121214
  Transmission Date: 20130627
  Serious: No
  Sender: FDA-Public Use
  Company Number: US-PFIZER INC-2012289508

PATIENT
  Age: 56 Year
  Sex: Female
  Weight: 52.15 kg

DRUGS (3)
  1. DIFLUCAN [Suspect]
     Indication: VAGINAL INFECTION
     Dosage: UNK, 1 dose only
     Route: 048
     Dates: start: 20121009, end: 20121009
  2. METRONIDAZOLE [Suspect]
     Indication: VAGINAL INFECTION
     Dosage: 500 mg, (1 tab) 3x/day
     Route: 048
     Dates: start: 20121009, end: 20121013
  3. FLUCONAZOLE [Suspect]
     Dosage: 200 mg, 1x/day

REACTIONS (5)
  - Tinnitus [Not Recovered/Not Resolved]
  - Diarrhoea [Recovered/Resolved]
  - Nausea [Recovered/Resolved]
  - Dizziness [Recovered/Resolved]
  - Headache [Not Recovered/Not Resolved]
